FAERS Safety Report 9625673 (Version 1)
Quarter: 2013Q4

REPORT INFORMATION
  Report Type: Spontaneous
  Country: IT (occurrence: IT)
  Receive Date: 20131016
  Receipt Date: 20131016
  Transmission Date: 20140711
  Serious: Yes (Other)
  Sender: FDA-Public Use
  Company Number: IT-ASTRAZENECA-2013SE75166

PATIENT
  Age: 4030 Week
  Sex: Female

DRUGS (5)
  1. SEROQUEL [Suspect]
     Indication: PSYCHOTIC DISORDER
     Route: 048
     Dates: end: 20130624
  2. SEROQUEL [Interacting]
     Indication: PSYCHOTIC DISORDER
     Route: 048
     Dates: start: 20130625, end: 20130701
  3. SEROQUEL [Interacting]
     Indication: PSYCHOTIC DISORDER
     Route: 048
  4. TRANDOLAPRIL [Interacting]
     Indication: HYPERTENSION
     Route: 048
     Dates: start: 20130101, end: 20130701
  5. SIVASTIN [Concomitant]
     Indication: HYPERCHOLESTEROLAEMIA
     Route: 048
     Dates: start: 20130101, end: 20130701

REACTIONS (3)
  - Drug interaction [Recovered/Resolved]
  - Loss of consciousness [Recovered/Resolved]
  - Hypotension [Recovered/Resolved]
